FAERS Safety Report 8622587-5 (Version None)
Quarter: 2012Q3

REPORT INFORMATION
  Report Type: 
  Country: None (occurrence: None)
  Receive Date: 20120810
  Receipt Date: 20120731
  Transmission Date: 20120928
  Serious: Yes (Other)
  Sender: FDA-Public Use
  Company Number: 2012S1000433

PATIENT
  Age: 87 Year
  Sex: Female
  Weight: 55.79 kg

DRUGS (7)
  1. METOPROLOL TARTRATE [Concomitant]
  2. HYDROCHLOROTHIAZIDE [Concomitant]
  3. LIVALO [Suspect]
     Indication: BLOOD CHOLESTEROL INCREASED
     Dosage: 2 MG; 1X; PO
     Route: 048
     Dates: start: 20120404, end: 20120407
  4. JANUMET [Concomitant]
  5. GLIMEPIRIDE [Concomitant]
  6. LOTREL [Concomitant]
  7. SYNTHROID [Concomitant]

REACTIONS (6)
  - ABDOMINAL PAIN [None]
  - NECK PAIN [None]
  - VOMITING [None]
  - NAUSEA [None]
  - BACK PAIN [None]
  - HAEMOPTYSIS [None]
